FAERS Safety Report 8740383 (Version 2)
Quarter: 2013Q4

REPORT INFORMATION
  Report Type: Report from Study
  Country: US (occurrence: US)
  Receive Date: 20120823
  Receipt Date: 20131101
  Transmission Date: 20140711
  Serious: No
  Sender: FDA-Public Use
  Company Number: US-009507513-1208USA004751

PATIENT
  Sex: Male
  Weight: 97.52 kg

DRUGS (9)
  1. PEG-INTRON [Suspect]
     Dosage: 150 MICROGRAMS/0.5 MILLILITERS
     Route: 058
  2. VICTRELIS [Suspect]
     Dosage: UNK MG, UNK
  3. REBETOL [Suspect]
     Dosage: UNK MG, UNK
  4. OMEPRAZOLE [Concomitant]
     Dosage: 20 MG, UNK
  5. LISINOPRIL [Concomitant]
     Dosage: 2.5 MG, UNK
  6. DOXYCYCLINE [Concomitant]
     Dosage: 20 MG, UNK
  7. NEURONTIN [Concomitant]
     Dosage: 100 MG, UNK
  8. VIIBRYD [Concomitant]
     Dosage: 10 MG, UNK
  9. OXYCODONE [Concomitant]
     Dosage: 5 MG, UNK

REACTIONS (12)
  - Gallbladder pain [Unknown]
  - Cholecystitis [Unknown]
  - Gastrooesophageal reflux disease [Unknown]
  - Glossodynia [Unknown]
  - Eructation [Unknown]
  - Parosmia [Unknown]
  - Vision blurred [Unknown]
  - Dysgeusia [Unknown]
  - Irritability [Unknown]
  - Dyspnoea [Unknown]
  - Fatigue [Unknown]
  - Rash [Unknown]
